FAERS Safety Report 4801638-X (Version None)
Quarter: 2005Q4

REPORT INFORMATION
  Report Type: 
  Country: None (occurrence: None)
  Receive Date: 20051018
  Receipt Date: 20051014
  Transmission Date: 20060501
  Serious: Yes (Hospitalization)
  Sender: FDA-Public Use
  Company Number: JP-SANOFI-SYNTHELABO-F01200502140

PATIENT
  Sex: Male
  Weight: 39 kg

DRUGS (3)
  1. OXALIPLATIN [Suspect]
     Indication: COLON CANCER
     Route: 042
     Dates: start: 20050705, end: 20050705
  2. FLUOROURACIL [Suspect]
     Dosage: 500MG/BODY =367.7MG/M2 IN BOLUS THEN 750MG/BODY=551.5MG/M2 AS CONTINUOUS INFUSION ON DAYS 1 AND 2
     Route: 042
     Dates: start: 20050705, end: 20050706
  3. CALCIUM LEVOFOLINATE [Suspect]
     Route: 042
     Dates: start: 20050705, end: 20050706

REACTIONS (5)
  - ANOREXIA [None]
  - BLOOD CREATININE INCREASED [None]
  - DEHYDRATION [None]
  - NAUSEA [None]
  - VOMITING [None]
